FAERS Safety Report 5551529-4 (Version None)
Quarter: 2007Q4

REPORT INFORMATION
  Report Type: 
  Country: None (occurrence: None)
  Receive Date: 20071212
  Receipt Date: 20071130
  Transmission Date: 20080405
  Serious: Yes (Other)
  Sender: FDA-Public Use
  Company Number: GB-PFIZER INC-2007101859

PATIENT
  Age: 60 Year
  Sex: Female
  Weight: 74.5 kg

DRUGS (3)
  1. PREGABALIN [Suspect]
     Indication: EPILEPSY
     Route: 048
  2. EPILIM [Concomitant]
     Route: 048
  3. KEPPRA [Concomitant]
     Route: 048
     Dates: start: 20030101, end: 20070801

REACTIONS (1)
  - HEARING IMPAIRED [None]
